FAERS Safety Report 8394484-4 (Version None)
Quarter: 2012Q2

REPORT INFORMATION
  Report Type: 
  Country: None (occurrence: None)
  Receive Date: 20120530
  Receipt Date: 20120525
  Transmission Date: 20120825
  Serious: Yes (Hospitalization, Other)
  Sender: FDA-Public Use
  Company Number: PHHY2012AT035704

PATIENT
  Age: 67 Year
  Sex: Female
  Weight: 88 kg

DRUGS (14)
  1. ZOMETA [Suspect]
     Dosage: 4 MG, 1 TIMES IN 3 MONTHS
     Dates: start: 20111201
  2. PROTON PUMP INHIBITORS [Concomitant]
     Dosage: 40 MG, 1-0-0
  3. ZOMETA [Suspect]
     Dosage: 4 MG, 1 TIMES IN 3 MONTHS
     Dates: start: 20120126
  4. CYANOCOBALAMIN [Concomitant]
     Dosage: 1 DF, BID
  5. DIABETEX [Concomitant]
     Dosage: 950 MG, DAILY
     Route: 048
  6. SUCRALFATE [Concomitant]
     Dosage: 1 DF, TID
  7. ZOMETA [Suspect]
     Indication: METASTASES TO BONE
     Dosage: 4 MG, ONCE IN 3 MONTHS
     Dates: start: 20111003
  8. ARIMIDEX [Concomitant]
     Dosage: 1 DF, QD
     Route: 048
  9. PANTOPRAZOLE [Concomitant]
  10. THIAMINE DISULFIDE [Concomitant]
     Dosage: 1 DF, BID
  11. AMARYL [Concomitant]
     Dosage: 3 MG, QD
  12. TIZANIDINE HYDROCHLORIDE [Concomitant]
     Dosage: 4 MG, QD
  13. PYRIDOXINE HYDROCHLORIDE [Concomitant]
     Dosage: 1 DF, BID
  14. EXFORGE [Concomitant]
     Dosage: 1 DF, QD

REACTIONS (3)
  - OSTEOMYELITIS [None]
  - SOFT TISSUE INFECTION [None]
  - OSTEONECROSIS OF JAW [None]
